FAERS Safety Report 6718896-7 (Version None)
Quarter: 2010Q2

REPORT INFORMATION
  Report Type: 
  Country: None (occurrence: None)
  Receive Date: 20100511
  Receipt Date: 20100503
  Transmission Date: 20101027
  Serious: No
  Sender: FDA-Public Use
  Company Number: US-BIOGENIDEC-2010BI014774

PATIENT
  Sex: Male

DRUGS (1)
  1. AVONEX [Suspect]
     Indication: MULTIPLE SCLEROSIS
     Route: 030
     Dates: end: 20051020

REACTIONS (4)
  - BALANCE DISORDER [None]
  - HYPOAESTHESIA [None]
  - MULTIPLE SCLEROSIS [None]
  - VISUAL IMPAIRMENT [None]
